FAERS Safety Report 11880782 (Version 7)
Quarter: 2016Q1

REPORT INFORMATION
  Report Type: Spontaneous
  Country: JP (occurrence: JP)
  Receive Date: 20151230
  Receipt Date: 20160212
  Transmission Date: 20160526
  Serious: Yes (Death, Life-Threatening, Hospitalization, Other)
  Sender: FDA-Public Use
  Company Number: JP-BRISTOL-MYERS SQUIBB COMPANY-BMS-2015-091679

PATIENT
  Age: 79 Year
  Sex: Male

DRUGS (10)
  1. FRANDOL [Concomitant]
     Active Substance: ISOSORBIDE DINITRATE
     Indication: PRODUCT USED FOR UNKNOWN INDICATION
     Dosage: 40 MG, QD
     Route: 062
     Dates: start: 20151218
  2. SULTANOL [Concomitant]
     Active Substance: ALBUTEROL SULFATE
     Indication: PRODUCT USED FOR UNKNOWN INDICATION
     Dosage: 100 ?G, PRN
     Route: 055
     Dates: start: 20151218, end: 20151221
  3. ELIQUIS [Suspect]
     Active Substance: APIXABAN
     Indication: CEREBROVASCULAR ACCIDENT PROPHYLAXIS
     Dosage: 2.5 MG, BID
     Route: 048
     Dates: start: 20151218, end: 20151222
  4. DIART [Concomitant]
     Active Substance: AZOSEMIDE
     Indication: CARDIAC FAILURE CHRONIC
     Dosage: 60 MG, QD
     Route: 048
     Dates: start: 20151218, end: 20151221
  5. MUCOSOLVAN [Concomitant]
     Active Substance: AMBROXOL HYDROCHLORIDE
     Indication: PRODUCT USED FOR UNKNOWN INDICATION
     Dosage: 15 MG, TID
     Route: 048
     Dates: start: 20151218, end: 20151221
  6. TAKEPRON [Concomitant]
     Active Substance: LANSOPRAZOLE
     Indication: PRODUCT USED FOR UNKNOWN INDICATION
     Dosage: 1 TAB, QD
     Route: 048
     Dates: start: 20151218, end: 20151221
  7. BISOLVON [Concomitant]
     Active Substance: BROMHEXINE HYDROCHLORIDE
     Indication: PRODUCT USED FOR UNKNOWN INDICATION
     Dosage: 4 MG, TID
     Route: 048
     Dates: start: 20151218, end: 20151221
  8. ARTIST [Concomitant]
     Active Substance: CARVEDILOL
     Indication: CARDIAC FAILURE CHRONIC
     Dosage: 2.5 MG, QD
     Route: 048
     Dates: start: 20151218, end: 20151221
  9. COMELIAN [Concomitant]
     Active Substance: DILAZEP
     Indication: PRODUCT USED FOR UNKNOWN INDICATION
     Dosage: 40 MG, TID
     Route: 048
     Dates: start: 20151218, end: 20151221
  10. VASOLAN                            /00014302/ [Concomitant]
     Active Substance: VERAPAMIL HYDROCHLORIDE
     Indication: PRODUCT USED FOR UNKNOWN INDICATION
     Dosage: 40 MG, TID
     Route: 048
     Dates: start: 20151218, end: 20151221

REACTIONS (11)
  - Fall [Unknown]
  - Pneumonia [Fatal]
  - Cardiac failure congestive [Unknown]
  - Toxicity to various agents [Fatal]
  - Hypoglycaemia [Unknown]
  - Multiple organ dysfunction syndrome [Fatal]
  - Acute respiratory failure [Unknown]
  - Rhabdomyolysis [Recovering/Resolving]
  - Cardiac failure acute [Recovering/Resolving]
  - Disseminated intravascular coagulation [Unknown]
  - Hypotension [Unknown]

NARRATIVE: CASE EVENT DATE: 20151221
